FAERS Safety Report 10216673 (Version 1)
Quarter: 2014Q2

REPORT INFORMATION
  Report Type: Spontaneous
  Country: FR (occurrence: FR)
  Receive Date: 20140604
  Receipt Date: 20140604
  Transmission Date: 20141212
  Serious: Yes (Hospitalization)
  Sender: FDA-Public Use
  Company Number: FR-ASTRAZENECA-2014SE36790

PATIENT
  Age: 26407 Day
  Sex: Male

DRUGS (13)
  1. INEXIUM [Suspect]
     Dosage: EVERY DAY
     Route: 048
  2. PLAVIX [Suspect]
     Indication: THROMBOSIS PROPHYLAXIS
     Dosage: EVERY DAY
     Route: 048
     Dates: start: 20140326
  3. KARDEGIC [Concomitant]
     Route: 048
  4. PREVISCAN [Concomitant]
     Indication: ATRIAL FIBRILLATION
     Route: 048
  5. CORDARONE [Concomitant]
  6. DEBRIDAT [Concomitant]
  7. JOSIR [Concomitant]
     Route: 048
  8. CARDENSIEL [Concomitant]
     Route: 048
  9. FORLAX [Concomitant]
     Route: 048
  10. DIAMICRON MR [Concomitant]
     Route: 048
  11. CRESTOR [Concomitant]
     Route: 048
  12. LEVEMIR [Concomitant]
  13. VICTOZA [Concomitant]

REACTIONS (1)
  - Coronary artery occlusion [Recovering/Resolving]
